FAERS Safety Report 10682271 (Version 3)
Quarter: 2015Q1

REPORT INFORMATION
  Report Type: Report from Study
  Country: AU (occurrence: AU)
  Receive Date: 20141230
  Receipt Date: 20150121
  Transmission Date: 20150720
  Serious: Yes (Hospitalization)
  Sender: FDA-Public Use
  Company Number: AU-JNJFOC-20141216352

PATIENT
  Sex: Female
  Weight: 65 kg

DRUGS (5)
  1. 6-MERCAPTOPURINE [Concomitant]
     Active Substance: MERCAPTOPURINE
     Route: 065
  2. 6-MERCAPTOPURINE [Concomitant]
     Active Substance: MERCAPTOPURINE
     Route: 065
  3. 6-THIOGUANINE [Concomitant]
     Active Substance: THIOGUANINE
     Route: 065
  4. REMICADE [Suspect]
     Active Substance: INFLIXIMAB
     Indication: CROHN^S DISEASE
     Dosage: 100 MG, 4 VIALS
     Route: 042
  5. MESALAZINE [Concomitant]
     Active Substance: MESALAMINE
     Route: 048

REACTIONS (6)
  - Ileal stenosis [Unknown]
  - Crohn^s disease [Unknown]
  - Small intestinal obstruction [Unknown]
  - Urosepsis [Unknown]
  - Enterovesical fistula [Unknown]
  - Blood pressure decreased [Unknown]
